FAERS Safety Report 16975884 (Version 1)
Quarter: 2019Q4

REPORT INFORMATION
  Report Type: Spontaneous
  Country: GB (occurrence: GB)
  Receive Date: 20191030
  Receipt Date: 20191030
  Transmission Date: 20200122
  Serious: Yes (Death, Hospitalization, Other)
  Sender: FDA-Public Use
  Company Number: GB-MYLANLABS-2019M1102915

PATIENT

DRUGS (2)
  1. WARFARIN [Suspect]
     Active Substance: WARFARIN
     Indication: CEREBROVASCULAR ACCIDENT
     Dosage: UNK
  2. MICONAZOLE. [Interacting]
     Active Substance: MICONAZOLE
     Indication: CELLULITIS
     Dosage: UNK

REACTIONS (4)
  - Internal haemorrhage [Fatal]
  - International normalised ratio increased [Fatal]
  - Drug interaction [Fatal]
  - Product prescribing error [Fatal]
